FAERS Safety Report 8466624 (Version 2)
Quarter: 2014Q4

REPORT INFORMATION
  Report Type: Spontaneous
  Country: US (occurrence: US)
  Receive Date: 20120319
  Receipt Date: 20141117
  Transmission Date: 20150529
  Serious: Yes (Other)
  Sender: FDA-Public Use
  Company Number: US-ROCHE-784132

PATIENT
  Age: 16 Year
  Sex: Male
  Weight: 72.64 kg

DRUGS (2)
  1. ACCUTANE [Suspect]
     Active Substance: ISOTRETINOIN
     Indication: ACNE
     Route: 065
     Dates: start: 19940421, end: 19940914
  2. ACCUTANE [Suspect]
     Active Substance: ISOTRETINOIN
     Route: 065
     Dates: start: 19950420, end: 19950906

REACTIONS (14)
  - Inflammatory bowel disease [Unknown]
  - Dry skin [Unknown]
  - Nasal dryness [Unknown]
  - Sunburn [Unknown]
  - Colitis ulcerative [Unknown]
  - Dry eye [Unknown]
  - Depression [Unknown]
  - Stress [Unknown]
  - Ligament sprain [Unknown]
  - Dermatitis contact [Unknown]
  - Ingrowing nail [Unknown]
  - Acne [Unknown]
  - Epistaxis [Unknown]
  - Vision blurred [Unknown]

NARRATIVE: CASE EVENT DATE: 19940517
